FAERS Safety Report 5798695-3 (Version None)
Quarter: 2008Q2

REPORT INFORMATION
  Report Type: 
  Country: None (occurrence: None)
  Receive Date: 20080630
  Receipt Date: 20080616
  Transmission Date: 20081010
  Serious: Yes (Other)
  Sender: FDA-Public Use
  Company Number: DE-1166420

PATIENT
  Age: 56 Year
  Sex: Male

DRUGS (17)
  1. MAXITROL [Suspect]
     Dosage: 5 TIMES DAILY OPHTHALMIC
     Route: 047
  2. MAXITROL [Suspect]
     Dosage: QHS OPHTHALMIC
     Route: 047
  3. KANAMYCIN SULFATE [Suspect]
     Dosage: OPHTHALMIC
     Route: 047
     Dates: start: 20080130
  4. KANAMYCIN SULFATE [Suspect]
     Dosage: OPHTHALMIC
     Route: 047
     Dates: start: 20080201
  5. TOBRADEX [Suspect]
     Dosage: OPHTHALMIC
     Route: 047
  6. COSOPT (COSOPT) [Concomitant]
  7. BOTOX (BOTULINUM TOXIN TYPE A) [Concomitant]
  8. ACTIHAEMYL (BLOOD, CALF, DEPROT., 1MW PORTION) [Concomitant]
  9. ACLO (ACECLOFENAC) [Concomitant]
  10. BORO-SCOPOL (HYOSCINE BORATE) [Concomitant]
  11. DEXAGEL (DEXAMETHASONE SODIUM PHOSPHATE) [Concomitant]
  12. CORNEREGEL (DEXPANTHENOL) [Concomitant]
  13. TIMOPHTAL (TIMOLOL MALEATE) [Concomitant]
  14. FLOXAL (OFLOXACIN) [Concomitant]
  15. OFTAQUIX (LEVOFLOXACIN) [Concomitant]
  16. XALATAN [Concomitant]
  17. TOBRADEX [Suspect]
     Route: 047

REACTIONS (4)
  - CORNEAL DEPOSITS [None]
  - CORNEAL EROSION [None]
  - INTRAOCULAR PRESSURE INCREASED [None]
  - ORGAN TRANSPLANT [None]
